FAERS Safety Report 10064607 (Version 4)
Quarter: 2014Q2

REPORT INFORMATION
  Report Type: Spontaneous
  Country: US (occurrence: US)
  Receive Date: 20140408
  Receipt Date: 20140513
  Transmission Date: 20141212
  Serious: Yes (Other)
  Sender: FDA-Public Use
  Company Number: US-BAYER-2014-050293

PATIENT
  Age: 22 Year
  Sex: Female

DRUGS (2)
  1. ESSURE [Suspect]
     Indication: CONTRACEPTION
     Dosage: UNK
     Dates: start: 20130529
  2. MIRENA [Suspect]
     Dosage: 20 MCG/24HR, CONT
     Route: 015
     Dates: start: 200809, end: 20130527

REACTIONS (11)
  - Dizziness [Recovered/Resolved]
  - Pruritus generalised [Recovering/Resolving]
  - Pelvic pain [Recovering/Resolving]
  - Adnexa uteri pain [Recovering/Resolving]
  - Menstrual disorder [Recovering/Resolving]
  - Menorrhagia [Recovering/Resolving]
  - Allergy to metals [Recovering/Resolving]
  - Oligomenorrhoea [None]
  - Back pain [Recovered/Resolved]
  - Device dislocation [Recovered/Resolved]
  - Uterine injury [Recovered/Resolved]
